FAERS Safety Report 21701278 (Version 4)
Quarter: 2023Q1

REPORT INFORMATION
  Report Type: Spontaneous
  Country: JP (occurrence: None)
  Receive Date: 20221208
  Receipt Date: 20230217
  Transmission Date: 20230418
  Serious: Yes (Other)
  Sender: FDA-Public Use
  Company Number: 2022A396005

PATIENT
  Age: 74 Year
  Sex: Female

DRUGS (7)
  1. LYNPARZA [Suspect]
     Active Substance: OLAPARIB
     Indication: Ovarian cancer recurrent
     Dosage: 150.0MG UNKNOWN
     Route: 048
  2. LYNPARZA [Suspect]
     Active Substance: OLAPARIB
     Indication: Ovarian cancer recurrent
     Dosage: 150.0MG UNKNOWN
     Route: 048
     Dates: start: 20230111
  3. CARBOPLATIN [Concomitant]
     Active Substance: CARBOPLATIN
     Indication: Hypoaesthesia
     Dates: start: 20201020, end: 20210406
  4. ETIZOLAM [Concomitant]
     Active Substance: ETIZOLAM
     Dosage: UNKNOWN
  5. HERBALS [Concomitant]
     Active Substance: HERBALS
     Indication: Hypoaesthesia
     Dosage: UNKNOWN
     Route: 065
     Dates: start: 202011
  6. METHYLCOBALAMIN [Concomitant]
     Active Substance: METHYLCOBALAMIN
     Dosage: UNKNOWN
  7. PACLITAXEL [Concomitant]
     Active Substance: PACLITAXEL
     Indication: Hypoaesthesia
     Route: 065
     Dates: start: 20201020, end: 20210406

REACTIONS (1)
  - Gastric cancer [Unknown]

NARRATIVE: CASE EVENT DATE: 20221125
